FAERS Safety Report 11244421 (Version 1)
Quarter: 2015Q3

REPORT INFORMATION
  Report Type: Spontaneous
  Country: GB (occurrence: GB)
  Receive Date: 20150707
  Receipt Date: 20150707
  Transmission Date: 20151125
  Serious: Yes (Hospitalization, Other)
  Sender: FDA-Public Use
  Company Number: GB-TEVA-525385ISR

PATIENT
  Age: 74 Year

DRUGS (6)
  1. DONEPEZIL. [Suspect]
     Active Substance: DONEPEZIL
     Dosage: 10 MILLIGRAM DAILY; STOPPED ON ADMISSION
  2. RISPERIDONE. [Suspect]
     Active Substance: RISPERIDONE
     Dosage: STOPPED ON ADMISSION.
  3. PERINDOPRIL [Concomitant]
     Active Substance: PERINDOPRIL
  4. PROCYCLIDINE [Concomitant]
     Active Substance: PROCYCLIDINE
  5. DOXAZOSIN [Suspect]
     Active Substance: DOXAZOSIN\DOXAZOSIN MESYLATE
     Dosage: 1 MILLIGRAM DAILY; STOPPED ON ADMISSION.
  6. AMLODIPINE [Concomitant]
     Active Substance: AMLODIPINE BESYLATE

REACTIONS (2)
  - Fall [Unknown]
  - Bradycardia [Recovered/Resolved with Sequelae]
